FAERS Safety Report 9732001 (Version 2)
Quarter: 2014Q1

REPORT INFORMATION
  Report Type: Spontaneous
  Country: CA (occurrence: CA)
  Receive Date: 20131204
  Receipt Date: 20140117
  Transmission Date: 20141002
  Serious: Yes (Death)
  Sender: FDA-Public Use
  Company Number: CA-BAYER-2013-145775

PATIENT
  Age: 16 Year
  Sex: Female
  Weight: 79.82 kg

DRUGS (3)
  1. YASMIN 28 [Suspect]
     Dosage: UNK
     Dates: start: 20070502, end: 20080611
  2. OMEPRAZOLE [Concomitant]
  3. NAPROXEN [Concomitant]

REACTIONS (1)
  - Pulmonary embolism [Fatal]
